FAERS Safety Report 14858917 (Version 2)
Quarter: 2018Q4

REPORT INFORMATION
  Report Type: Spontaneous
  Country: FR (occurrence: FR)
  Receive Date: 20180508
  Receipt Date: 20181025
  Transmission Date: 20190204
  Serious: Yes (Hospitalization)
  Sender: FDA-Public Use
  Company Number: FR-MERCK KGAA-2047376

PATIENT
  Age: 52 Year
  Sex: Female

DRUGS (2)
  1. EUTHYROX [Suspect]
     Active Substance: LEVOTHYROXINE SODIUM
     Indication: POST PROCEDURAL HYPOTHYROIDISM
     Dates: start: 201705
  2. EUTHYROX [Suspect]
     Active Substance: LEVOTHYROXINE SODIUM
     Dates: start: 20170713

REACTIONS (41)
  - Limb discomfort [None]
  - Gait inability [None]
  - Middle insomnia [None]
  - Bone pain [None]
  - Gastrointestinal disorder [None]
  - Weight increased [None]
  - Nausea [None]
  - Sleep disorder [None]
  - Adverse event [None]
  - Pain [None]
  - Dyspepsia [None]
  - Body temperature fluctuation [None]
  - Memory impairment [None]
  - Apathy [None]
  - Mood swings [None]
  - Irritability [None]
  - Loss of personal independence in daily activities [None]
  - Alopecia [None]
  - Tendonitis [None]
  - Mobility decreased [None]
  - Tendon pain [None]
  - Fatigue [None]
  - Myalgia [None]
  - Vertigo [None]
  - Muscle spasms [None]
  - Headache [None]
  - Movement disorder [None]
  - Pain in extremity [None]
  - Visual impairment [None]
  - Nervousness [None]
  - Palpitations [None]
  - Tremor [None]
  - Arthralgia [None]
  - Libido decreased [None]
  - Oedema peripheral [None]
  - Dyspnoea [None]
  - Sense of oppression [None]
  - Disturbance in attention [None]
  - Asthenia [None]
  - Insomnia [None]
  - Blood thyroid stimulating hormone decreased [Recovered/Resolved]

NARRATIVE: CASE EVENT DATE: 201705
